FAERS Safety Report 24565864 (Version 2)
Quarter: 2024Q4

REPORT INFORMATION
  Report Type: Report from Study
  Country: BR (occurrence: BR)
  Receive Date: 20241030
  Receipt Date: 20241113
  Transmission Date: 20250114
  Serious: Yes (Hospitalization)
  Sender: BIOGEN
  Company Number: BR-BIOGEN-2024BI01279262

PATIENT
  Sex: Male
  Weight: 80 kg

DRUGS (2)
  1. TYSABRI [Suspect]
     Active Substance: NATALIZUMAB
     Indication: Multiple sclerosis
     Route: 050
     Dates: start: 2020, end: 2022
  2. TYSABRI [Suspect]
     Active Substance: NATALIZUMAB
     Dosage: EXTENDED INTERVAL DOSING, DOSE REDUCED
     Route: 050
     Dates: start: 2022

REACTIONS (2)
  - Multiple sclerosis [Not Recovered/Not Resolved]
  - Prescribed underdose [Not Recovered/Not Resolved]

NARRATIVE: CASE EVENT DATE: 20220101
